FAERS Safety Report 5590788-9 (Version None)
Quarter: 2008Q1

REPORT INFORMATION
  Report Type: 
  Country: None (occurrence: None)
  Receive Date: 20080114
  Receipt Date: 20080104
  Transmission Date: 20080703
  Serious: Yes (Hospitalization, Other)
  Sender: FDA-Public Use
  Company Number: BR-PFIZER INC-2008002169

PATIENT
  Sex: Male
  Weight: 70 kg

DRUGS (4)
  1. CARDURAN XL [Suspect]
     Indication: URINARY INCONTINENCE
     Route: 048
  2. OXYBUTYNIN CHLORIDE [Suspect]
  3. HIDANTAL [Concomitant]
  4. PHENOBARBITAL TAB [Concomitant]

REACTIONS (6)
  - ALOPECIA [None]
  - CONVULSION [None]
  - LOSS OF CONSCIOUSNESS [None]
  - MEDICATION ERROR [None]
  - OEDEMA PERIPHERAL [None]
  - VISUAL DISTURBANCE [None]
